FAERS Safety Report 6371074-6 (Version None)
Quarter: 2009Q3

REPORT INFORMATION
  Report Type: 
  Country: None (occurrence: None)
  Receive Date: 20090923
  Receipt Date: 20090912
  Transmission Date: 20100115
  Serious: Yes (Other)
  Sender: FDA-Public Use
  Company Number: PHEH2009US10933

PATIENT
  Age: 31 Year
  Sex: Female

DRUGS (4)
  1. TOBI [Suspect]
     Indication: INFECTION
     Dosage: UNK/FOR 28 DAYS
  2. TOBI [Suspect]
     Dosage: UNK/28DAYS ON, 28 DAYS OFF
     Dates: start: 20060101
  3. TOBRAMYCIN [Suspect]
     Indication: PULMONARY CONGESTION
     Dosage: UNK/ FOR 2-3 WEEKS
     Route: 042
     Dates: start: 19970101
  4. SALINE [Suspect]

REACTIONS (8)
  - BRONCHOSPASM [None]
  - DISEASE PROGRESSION [None]
  - DYSGEUSIA [None]
  - INFECTION [None]
  - OSCILLOPSIA [None]
  - RESPIRATORY TRACT IRRITATION [None]
  - THROAT IRRITATION [None]
  - VESTIBULAR DISORDER [None]
